FAERS Safety Report 25352318 (Version 8)
Quarter: 2025Q3

REPORT INFORMATION
  Report Type: Spontaneous
  Country: JP (occurrence: JP)
  Receive Date: 20250523
  Receipt Date: 20250904
  Transmission Date: 20251021
  Serious: Yes (Hospitalization, Other)
  Sender: MERCK SHARP & DOHME LLC
  Company Number: JP-009507513-2284407

PATIENT
  Age: 6 Decade
  Sex: Male

DRUGS (2)
  1. KEYTRUDA [Suspect]
     Active Substance: PEMBROLIZUMAB
     Dosage: 200 MG, Q3W, STRENGTH 100 MG
     Route: 042
     Dates: start: 202403, end: 202505
  2. LENVIMA [Concomitant]
     Active Substance: LENVATINIB
     Indication: Renal cell carcinoma
     Dosage: 20 MG, Q3W
     Route: 048
     Dates: start: 202403, end: 202505

REACTIONS (6)
  - Sinusitis [Recovered/Resolved]
  - Activities of daily living decreased [Unknown]
  - Proteinuria [Recovered/Resolved]
  - Therapy partial responder [Not Recovered/Not Resolved]
  - Meningitis aseptic [Recovered/Resolved]
  - Altered state of consciousness [Recovered/Resolved]

NARRATIVE: CASE EVENT DATE: 20250101
